FAERS Safety Report 4602470-2 (Version None)
Quarter: 2005Q1

REPORT INFORMATION
  Report Type: 
  Country: None (occurrence: None)
  Receive Date: 20050307
  Receipt Date: 20050222
  Transmission Date: 20050727
  Serious: Yes (Hospitalization, Other)
  Sender: FDA-Public Use
  Company Number: 2005036588

PATIENT
  Age: 16 Year
  Sex: Female
  Weight: 92.9874 kg

DRUGS (5)
  1. ZOLOFT [Suspect]
     Indication: DEPRESSION
     Dosage: 150 MG
     Dates: start: 20050101
  2. ARIPIPRAZOLE (ARIPIPRAZOLE) [Concomitant]
  3. ALL OTHER THERAPEUTIC PRODUCTS (ALL OTHER THERAPEUTIC PRODUCTS) [Concomitant]
  4. VENLAFAXINE HCL [Concomitant]
  5. FLUOXETINE HYDROCHLORIDE [Concomitant]

REACTIONS (7)
  - ANGER [None]
  - DEPRESSION [None]
  - INTENTIONAL SELF-INJURY [None]
  - LACERATION [None]
  - SUICIDAL IDEATION [None]
  - THERMAL BURN [None]
  - TREATMENT NONCOMPLIANCE [None]
